FAERS Safety Report 8987353 (Version 2)
Quarter: 2013Q1

REPORT INFORMATION
  Report Type: Spontaneous
  Country: BR (occurrence: BR)
  Receive Date: 20121226
  Receipt Date: 20130308
  Transmission Date: 20140127
  Serious: Yes (Hospitalization)
  Sender: FDA-Public Use
  Company Number: BR-B.I. PHARMACEUTICALS,INC./RIDGEFIELD-2012-BR-01402BR

PATIENT
  Age: 81 Year
  Sex: Female
  Weight: 62 kg

DRUGS (6)
  1. PRADAXA [Suspect]
     Indication: ATRIAL FIBRILLATION
     Dosage: 220 MG
     Route: 048
     Dates: start: 201205, end: 20120925
  2. ENALAPRIL [Concomitant]
     Indication: CARDIOMYOPATHY
  3. ALDACTONE [Concomitant]
     Indication: CARDIOMYOPATHY
  4. SELOZOK [Concomitant]
     Indication: CARDIOMYOPATHY
  5. CARVEDILOL [Concomitant]
     Indication: CARDIOMYOPATHY
  6. LASIX [Concomitant]
     Indication: CARDIAC FAILURE

REACTIONS (4)
  - Cerebrovascular accident [Recovered/Resolved]
  - Hepatitis B [Recovered/Resolved]
  - Pruritus [Recovered/Resolved]
  - Jaundice [Recovered/Resolved]
